FAERS Safety Report 11786380 (Version 1)
Quarter: 2015Q4

REPORT INFORMATION
  Report Type: Spontaneous
  Country: GB (occurrence: GB)
  Receive Date: 20151130
  Receipt Date: 20151130
  Transmission Date: 20160305
  Serious: Yes (Other)
  Sender: FDA-Public Use
  Company Number: GB-PFIZER INC-2015395712

PATIENT
  Age: 89 Year
  Sex: Male

DRUGS (1)
  1. PHENYTOIN SODIUM. [Suspect]
     Active Substance: PHENYTOIN SODIUM
     Dosage: 1.7 G, UNK 1MG/MINUTE- ADMINISTERED OVER 34 MINUTES.
     Route: 042

REACTIONS (2)
  - Cold sweat [Unknown]
  - Unresponsive to stimuli [Unknown]
